FAERS Safety Report 9639454 (Version 1)
Quarter: 2013Q4

REPORT INFORMATION
  Report Type: Spontaneous
  Country: US (occurrence: US)
  Receive Date: 20131022
  Receipt Date: 20131022
  Transmission Date: 20140711
  Serious: No
  Sender: FDA-Public Use
  Company Number: US-009507513-1310USA009654

PATIENT
  Sex: Female

DRUGS (2)
  1. DORZOLAMIDE HYDROCHLORIDE (+) TIMOLOL MALEATE [Suspect]
     Indication: GLAUCOMA
     Dosage: ONE TO TWO YEARS AGO, 1 GTT, BID
     Route: 047
  2. COSOPT [Suspect]
     Dosage: 1 GTT, BID

REACTIONS (1)
  - Intraocular pressure increased [Recovered/Resolved]
